FAERS Safety Report 16956265 (Version 1)
Quarter: 2019Q4

REPORT INFORMATION
  Report Type: Spontaneous
  Country: US (occurrence: US)
  Receive Date: 20190905
  Receipt Date: 20190905
  Transmission Date: 20200122
  Serious: No
  Sender: FDA-Public Use
  Company Number: None

PATIENT
  Sex: Female

DRUGS (1)
  1. HUMIRA [Suspect]
     Active Substance: ADALIMUMAB
     Indication: GASTROENTERITIS ROTAVIRUS
     Route: 058
     Dates: start: 201902

REACTIONS (3)
  - Hot flush [None]
  - Heart rate increased [None]
  - Pyrexia [None]
